FAERS Safety Report 4692188-2 (Version None)
Quarter: 2005Q2

REPORT INFORMATION
  Report Type: 
  Country: None (occurrence: None)
  Receive Date: 20050614
  Receipt Date: 20050603
  Transmission Date: 20051028
  Serious: Yes (Life-Threatening, Hospitalization, Disabling)
  Sender: FDA-Public Use
  Company Number: 2005041171

PATIENT
  Age: 70 Year
  Sex: Male
  Weight: 60.4 kg

DRUGS (7)
  1. CARDENALIN (DOXAZOSIN) [Suspect]
     Indication: ESSENTIAL HYPERTENSION
     Dosage: 2 MG (2 MG, DAILY), ORAL
     Route: 048
     Dates: start: 20030222, end: 20050101
  2. OLMETEC (OLMESARTAN) [Suspect]
     Indication: ESSENTIAL HYPERTENSION
     Dosage: 20 MG (20 MG, DAILY), ORAL
     Route: 048
     Dates: start: 20040909, end: 20050101
  3. PLETAL [Suspect]
     Indication: CEREBRAL INFARCTION
     Dosage: 200 MG (100 MG, BID), ORAL
     Route: 048
     Dates: start: 20030428, end: 20050101
  4. NATEGLINIDE [Suspect]
     Indication: CEREBRAL INFARCTION
     Dosage: 270 MG (90 MG, TID),
     Dates: start: 20021004, end: 20050101
  5. BASEN (VOGLIBOSE) [Suspect]
     Indication: CEREBRAL INFARCTION
     Dosage: 0.9 MG (0.3 MG, TID),
     Dates: start: 20021004, end: 20050101
  6. CHOUTOUSAN (HERBAL EXTRACTS NOS) [Concomitant]
  7. GOSYAZINKIGAN (HERBAL EXTRACTS NOS) [Concomitant]

REACTIONS (12)
  - CEREBRAL INFARCTION [None]
  - DISEASE PROGRESSION [None]
  - DIZZINESS [None]
  - EXPRESSIVE LANGUAGE DISORDER [None]
  - FALL [None]
  - FATIGUE [None]
  - HEMIPARESIS [None]
  - HYPEROSMOLAR STATE [None]
  - HYPOGLYCAEMIA [None]
  - HYPOTENSION [None]
  - LOSS OF CONSCIOUSNESS [None]
  - MENTAL STATUS CHANGES [None]
